FAERS Safety Report 6529556-X (Version None)
Quarter: 2010Q1

REPORT INFORMATION
  Report Type: 
  Country: None (occurrence: None)
  Receive Date: 20100107
  Receipt Date: 20091228
  Transmission Date: 20100710
  Serious: Yes (Other)
  Sender: FDA-Public Use
  Company Number: JP-ELI_LILLY_AND_COMPANY-JP200912000641

PATIENT
  Age: 65 Year
  Sex: Male

DRUGS (2)
  1. GEMZAR [Suspect]
     Indication: BLADDER CANCER
     Dosage: UNK, UNK
     Route: 042
     Dates: end: 20090101
  2. CISPLATIN [Concomitant]
     Indication: BLADDER CANCER
     Route: 042

REACTIONS (1)
  - INFECTION [None]
